FAERS Safety Report 10228778 (Version 1)
Quarter: 2014Q2

REPORT INFORMATION
  Report Type: Spontaneous
  Country: NL (occurrence: NL)
  Receive Date: 20140610
  Receipt Date: 20140610
  Transmission Date: 20141212
  Serious: Yes (Life-Threatening)
  Sender: FDA-Public Use
  Company Number: NL-PFIZER INC-2014154920

PATIENT
  Age: 59 Year
  Sex: Male

DRUGS (3)
  1. ATORVASTATIN CALCIUM [Suspect]
     Indication: HYPERCHOLESTEROLAEMIA
     Dosage: 20 MG, 1X/DAY
     Dates: start: 20140513, end: 20140520
  2. OMEPRAZOLE [Interacting]
     Dosage: UNK
     Dates: start: 2005
  3. NIFEDIPINE [Suspect]
     Dosage: UNK
     Dates: start: 2010

REACTIONS (5)
  - Presyncope [Recovered/Resolved]
  - Vision blurred [Recovered/Resolved]
  - Somnolence [Recovered/Resolved]
  - Disorientation [Recovered/Resolved]
  - Drug interaction [Unknown]
